FAERS Safety Report 6920907-0 (Version None)
Quarter: 2010Q3

REPORT INFORMATION
  Report Type: 
  Country: None (occurrence: None)
  Receive Date: 20100812
  Receipt Date: 20100809
  Transmission Date: 20110219
  Serious: Yes (Hospitalization)
  Sender: FDA-Public Use
  Company Number: FR-SANOFI-AVENTIS-2010SA047173

PATIENT
  Age: 0 Day
  Sex: Female
  Weight: 1.28 kg

DRUGS (6)
  1. TAXOTERE [Suspect]
     Route: 064
     Dates: start: 20100120, end: 20100303
  2. EPIRUBICIN [Suspect]
     Route: 064
     Dates: start: 20091120, end: 20100104
  3. FLUOROURACILE [Suspect]
     Route: 064
     Dates: start: 20091120, end: 20100104
  4. CYCLOPHOSPHAMIDE [Suspect]
     Route: 064
     Dates: start: 20091120, end: 20100104
  5. SOLU-MEDROL [Concomitant]
     Indication: PREMEDICATION
     Route: 064
  6. ANTIEMETICS AND ANTINAUSEANTS [Concomitant]
     Indication: PREMEDICATION
     Route: 064

REACTIONS (4)
  - AMNIOTIC FLUID VOLUME INCREASED [None]
  - DRUG EXPOSURE DURING PREGNANCY [None]
  - FOETAL HEART RATE DISORDER [None]
  - FOETAL HYPOKINESIA [None]
